FAERS Safety Report 4514866-8 (Version None)
Quarter: 2004Q4

REPORT INFORMATION
  Report Type: 
  Country: None (occurrence: None)
  Receive Date: 20041201
  Receipt Date: 20041122
  Transmission Date: 20050328
  Serious: Yes (Other)
  Sender: FDA-Public Use
  Company Number: US-JNJFOC-20041105442

PATIENT
  Sex: Male
  Weight: 24.95 kg

DRUGS (1)
  1. CONCERTA [Suspect]
     Route: 049

REACTIONS (13)
  - ABNORMAL BEHAVIOUR [None]
  - BRUXISM [None]
  - FORMICATION [None]
  - HALLUCINATION [None]
  - HALLUCINATION, VISUAL [None]
  - HEART RATE INCREASED [None]
  - MOVEMENT DISORDER [None]
  - MUSCLE TWITCHING [None]
  - MYDRIASIS [None]
  - PARANOIA [None]
  - SCREAMING [None]
  - SELF INJURIOUS BEHAVIOUR [None]
  - TREMOR [None]
